FAERS Safety Report 4491914-5 (Version None)
Quarter: 2004Q4

REPORT INFORMATION
  Report Type: 
  Country: None (occurrence: None)
  Receive Date: 20041029
  Receipt Date: 20041029
  Transmission Date: 20050328
  Serious: Yes (Hospitalization)
  Sender: FDA-Public Use
  Company Number: None

PATIENT
  Age: 77 Year
  Sex: Male
  Weight: 91 kg

DRUGS (16)
  1. ROSIGLITAZONE 4 MG [Suspect]
     Indication: HYPERGLYCAEMIA
     Dosage: 4 MG QD ORAL
     Route: 048
     Dates: start: 20030514, end: 20040123
  2. METFORMIN HCL [Suspect]
     Indication: HYPERGLYCAEMIA
     Dosage: 850 MG TID ORAL
     Route: 048
     Dates: start: 20030914, end: 20040123
  3. VITAMIN E [Concomitant]
  4. AMITRIPTYLINE HCL [Concomitant]
  5. DARVOCET-N 100 [Concomitant]
  6. ASCORBIC ACID [Concomitant]
  7. FELODIPINE [Concomitant]
  8. FOSINOPRIL SODIUM [Concomitant]
  9. GLIPIZIDE [Concomitant]
  10. HYDROCHLOROTHIAZIDE [Concomitant]
  11. METOPROLOL SUCCINATE [Concomitant]
  12. SIMVASTATIN [Concomitant]
  13. WARFARIN SODIUM [Concomitant]
  14. LOPERAMIDE HCL [Concomitant]
  15. PSYLLIUM [Concomitant]
  16. CEPHALEXIN [Concomitant]

REACTIONS (8)
  - APHASIA [None]
  - COMA [None]
  - HYPOGLYCAEMIA [None]
  - HYPOTONIA [None]
  - MENTAL STATUS CHANGES [None]
  - RENAL FAILURE ACUTE [None]
  - SOMNOLENCE [None]
  - SPEECH DISORDER [None]
